FAERS Safety Report 5951092-X (Version None)
Quarter: 2008Q4

REPORT INFORMATION
  Report Type: 
  Country: None (occurrence: None)
  Receive Date: 20081112
  Receipt Date: 20081112
  Transmission Date: 20090506
  Serious: Yes (Hospitalization, Disabling)
  Sender: FDA-Public Use
  Company Number: None

PATIENT
  Sex: Female
  Weight: 179.1708 kg

DRUGS (7)
  1. DAPTOMYCIN CUBIST [Suspect]
     Indication: KLEBSIELLA BACTERAEMIA
     Dosage: 750MG Q24 HOUR IV
     Route: 042
     Dates: start: 20080930, end: 20081015
  2. DAPTOMYCIN CUBIST [Suspect]
     Indication: STAPHYLOCOCCAL ABSCESS
     Dosage: 750MG Q24 HOUR IV
     Route: 042
     Dates: start: 20080930, end: 20081015
  3. NORVASC [Concomitant]
  4. ASPIRIN [Concomitant]
  5. CALCIUM SUPPLIMENT [Concomitant]
  6. INSULIN [Concomitant]
  7. LYRECCA [Concomitant]

REACTIONS (1)
  - RHABDOMYOLYSIS [None]
